FAERS Safety Report 15487210 (Version 2)
Quarter: 2018Q4

REPORT INFORMATION
  Report Type: Spontaneous
  Country: US (occurrence: US)
  Receive Date: 20181011
  Receipt Date: 20181023
  Transmission Date: 20190205
  Serious: Yes (Hospitalization)
  Sender: FDA-Public Use
  Company Number: US-ROCHE-2197118

PATIENT
  Age: 13 Year
  Sex: Male
  Weight: 41.77 kg

DRUGS (4)
  1. ADEKS [Concomitant]
     Route: 048
     Dates: start: 20170316
  2. PULMOZYME [Suspect]
     Active Substance: DORNASE ALFA
     Indication: CYSTIC FIBROSIS
     Dosage: 1 VIAL, INHALATION ROUTE
     Route: 055
     Dates: start: 20170216
  3. VENTOLIN [Concomitant]
     Active Substance: ALBUTEROL SULFATE
     Route: 050
     Dates: start: 20170316
  4. TOBI [Concomitant]
     Active Substance: TOBRAMYCIN
     Route: 050
     Dates: start: 20170316

REACTIONS (1)
  - Cystic fibrosis [Unknown]

NARRATIVE: CASE EVENT DATE: 20180918
